FAERS Safety Report 4871292-X (Version None)
Quarter: 2005Q4

REPORT INFORMATION
  Report Type: 
  Country: None (occurrence: None)
  Receive Date: 20051229
  Receipt Date: 20051214
  Transmission Date: 20060501
  Serious: Yes (Death)
  Sender: FDA-Public Use
  Company Number: 2036

PATIENT
  Age: 61 Year
  Sex: Female
  Weight: 74.8435 kg

DRUGS (26)
  1. AVINZA [Suspect]
     Indication: BACK PAIN
     Dosage: 90 MG DAILY PO
     Route: 048
     Dates: start: 20051020, end: 20051022
  2. AVINZA [Suspect]
     Indication: MYOFASCIAL PAIN SYNDROME
     Dosage: 90 MG DAILY PO
     Route: 048
     Dates: start: 20051020, end: 20051022
  3. AVINZA [Suspect]
     Indication: NECK PAIN
     Dosage: 90 MG DAILY PO
     Route: 048
     Dates: start: 20051020, end: 20051022
  4. ACETAMINOPHEN [Concomitant]
  5. CALCIUM SUPPLEMENT [Concomitant]
  6. CARISOPRODOL [Concomitant]
  7. CONJUGATED ESTROGENS [Concomitant]
  8. DIAZEPAM [Concomitant]
  9. DIVALPROEX SODIUM [Concomitant]
  10. DICYCLOMINE [Concomitant]
  11. DOCUSATE [Concomitant]
  12. FELODIPINE [Concomitant]
  13. FEXOFENADINE HCL [Concomitant]
  14. FLUOXETINE/OLANZAPINE [Concomitant]
  15. FLURAZEPAM [Concomitant]
  16. IBUPROFEN [Concomitant]
  17. LACTULOSE [Concomitant]
  18. LANSOPRAZOLE [Concomitant]
  19. LOSARTAN [Concomitant]
  20. MAGNESIUM SUPPLEMENT [Concomitant]
  21. METOPROLOL [Concomitant]
  22. MULTI-VITAMIN [Concomitant]
  23. OXYCODONE AND ACETAMINOPHEN [Concomitant]
  24. SENNA [Concomitant]
  25. SIMETHICONE [Concomitant]
  26. ZOLPIDEM TARTRATE [Concomitant]

REACTIONS (2)
  - CORONARY ARTERY DISEASE [None]
  - MULTIPLE DRUG OVERDOSE [None]
